FAERS Safety Report 9559620 (Version 1)
Quarter: 2013Q3

REPORT INFORMATION
  Report Type: Spontaneous
  Country: US (occurrence: None)
  Receive Date: 20130924
  Receipt Date: 20130924
  Transmission Date: 20140515
  Serious: Yes (Other)
  Sender: FDA-Public Use
  Company Number: 2013US00590

PATIENT
  Sex: 0

DRUGS (3)
  1. GEMCITABINE [Suspect]
     Indication: BILE DUCT CANCER
     Dosage: INFUSION
  2. CISPLATIN [Suspect]
     Indication: BILE DUCT CANCER
     Dosage: INFUSION
  3. SORAFENIB [Suspect]
     Indication: BILE DUCT CANCER

REACTIONS (1)
  - Inappropriate antidiuretic hormone secretion [None]
